FAERS Safety Report 8296173-3 (Version None)
Quarter: 2012Q2

REPORT INFORMATION
  Report Type: 
  Country: None (occurrence: None)
  Receive Date: 20120418
  Receipt Date: 20120411
  Transmission Date: 20120825
  Serious: Yes (Other)
  Sender: FDA-Public Use
  Company Number: US-ABBOTT-12P-163-0924809-00

PATIENT
  Age: 70 Year
  Sex: Male

DRUGS (10)
  1. HYDROCHLOROTHIAZIDE [Concomitant]
     Indication: PRODUCT USED FOR UNKNOWN INDICATION
  2. COQ10 [Concomitant]
     Indication: PRODUCT USED FOR UNKNOWN INDICATION
  3. FISH OIL [Concomitant]
     Indication: PRODUCT USED FOR UNKNOWN INDICATION
  4. OTHER SUPPLEMENTS [Concomitant]
     Indication: PRODUCT USED FOR UNKNOWN INDICATION
  5. ATENOLOL [Concomitant]
     Indication: PRODUCT USED FOR UNKNOWN INDICATION
  6. HUMIRA [Suspect]
     Indication: PSORIATIC ARTHROPATHY
  7. ETODOLAC [Concomitant]
     Indication: ARTHRALGIA
  8. LIPITOR [Concomitant]
     Indication: BLOOD CHOLESTEROL
     Dates: start: 20100101
  9. HUMIRA [Suspect]
     Indication: PSORIASIS
     Dates: start: 20050101
  10. OMEPRAZOLE [Concomitant]
     Indication: PRODUCT USED FOR UNKNOWN INDICATION

REACTIONS (3)
  - MENISCUS LESION [None]
  - TINEA PEDIS [None]
  - FUNGAL INFECTION [None]
